FAERS Safety Report 8086312-1 (Version None)
Quarter: 2012Q1

REPORT INFORMATION
  Report Type: 
  Country: None (occurrence: None)
  Receive Date: 20120128
  Receipt Date: 20110427
  Transmission Date: 20120608
  Serious: No
  Sender: FDA-Public Use
  Company Number: US-ABBOTT-11P-163-0722562-00

PATIENT
  Sex: Female

DRUGS (4)
  1. HUMIRA [Suspect]
     Dates: start: 20110427
  2. TOPROL-XL [Concomitant]
     Indication: HEART RATE INCREASED
  3. HUMIRA [Suspect]
     Indication: RHEUMATOID ARTHRITIS
     Dates: start: 20110201
  4. ULTRAM [Concomitant]
     Indication: PAIN

REACTIONS (2)
  - PNEUMONIA [None]
  - SINUSITIS [None]
